FAERS Safety Report 9185703 (Version 2)
Quarter: 2013Q2

REPORT INFORMATION
  Report Type: Spontaneous
  Country: NZ (occurrence: NZ)
  Receive Date: 20130325
  Receipt Date: 20130407
  Transmission Date: 20140414
  Serious: Yes (Other)
  Sender: FDA-Public Use
  Company Number: NZ-AMGEN-NZLSP2013017638

PATIENT
  Age: 42 Year
  Sex: Female

DRUGS (2)
  1. VECTIBIX [Suspect]
     Indication: RECTAL CANCER METASTATIC
     Dosage: UNK
  2. CAPECITABINE [Concomitant]
     Dosage: UNK

REACTIONS (1)
  - Skin toxicity [Unknown]
